FAERS Safety Report 5367835-2 (Version None)
Quarter: 2007Q2

REPORT INFORMATION
  Report Type: 
  Country: None (occurrence: None)
  Receive Date: 20070622
  Receipt Date: 20070612
  Transmission Date: 20071010
  Serious: Yes (Hospitalization, Other)
  Sender: FDA-Public Use
  Company Number: US-PFIZER INC-2007020209

PATIENT
  Sex: Female
  Weight: 81.6 kg

DRUGS (24)
  1. VARENICLINE [Suspect]
     Indication: SMOKING CESSATION THERAPY
  2. ZOLOFT [Concomitant]
  3. POTASSIUM ACETATE [Concomitant]
  4. ALBUTEROL [Concomitant]
  5. ADVAIR DISKUS 100/50 [Concomitant]
  6. SPIRIVA [Concomitant]
  7. CYMBALTA [Concomitant]
  8. ACCOLATE [Concomitant]
  9. WELLBUTRIN [Concomitant]
  10. NEXIUM [Concomitant]
  11. MUCINEX [Concomitant]
  12. CRESTOR [Concomitant]
  13. OXYBUTYNIN [Concomitant]
  14. ACETYLSALICYLIC ACID SRT [Concomitant]
  15. VICODIN [Concomitant]
  16. ISOSORBIDE DINITRATE [Concomitant]
  17. LORATADINE [Concomitant]
  18. PROMETHAZINE [Concomitant]
  19. HYDROCHLOROTHIAZIDE [Concomitant]
  20. METOPROLOL SUCCINATE [Concomitant]
  21. HYZAAR [Concomitant]
  22. LASIX [Concomitant]
  23. XANAX [Concomitant]
  24. KLONOPIN [Concomitant]

REACTIONS (8)
  - CANDIDIASIS [None]
  - ECONOMIC PROBLEM [None]
  - GINGIVAL PAIN [None]
  - PAIN [None]
  - ROAD TRAFFIC ACCIDENT [None]
  - SURGERY [None]
  - THERAPEUTIC RESPONSE UNEXPECTED [None]
  - TOOTHACHE [None]
